FAERS Safety Report 10687543 (Version 2)
Quarter: 2015Q1

REPORT INFORMATION
  Report Type: Spontaneous
  Country: JP (occurrence: JP)
  Receive Date: 20150102
  Receipt Date: 20150223
  Transmission Date: 20150720
  Serious: Yes (Life-Threatening)
  Sender: FDA-Public Use
  Company Number: JP-GE HEALTHCARE MEDICAL DIAGNOSTICS-OMPQ-PR-1412S-1630

PATIENT
  Age: 76 Year
  Sex: Female
  Weight: 52 kg

DRUGS (10)
  1. OMNIPAQUE [Suspect]
     Active Substance: IOHEXOL
     Indication: PRODUCT USED FOR UNKNOWN INDICATION
     Route: 042
     Dates: start: 20141224, end: 20141224
  2. RINDERON V [Concomitant]
     Active Substance: BETAMETHASONE VALERATE
     Dates: start: 20141124
  3. SENNOSIDE [Concomitant]
     Active Substance: SENNOSIDES
  4. OMNIPAQUE [Suspect]
     Active Substance: IOHEXOL
     Indication: DIAGNOSTIC PROCEDURE
  5. LANSOPRAZOLE. [Concomitant]
     Active Substance: LANSOPRAZOLE
     Dates: start: 20141124
  6. PLAVIX [Concomitant]
     Active Substance: CLOPIDOGREL BISULFATE
  7. TEGRETOL [Concomitant]
     Active Substance: CARBAMAZEPINE
     Dates: start: 20141124
  8. LIVALO [Concomitant]
     Active Substance: PITAVASTATIN CALCIUM
  9. NICORANDIL [Concomitant]
     Active Substance: NICORANDIL
  10. TS-1 [Concomitant]
     Active Substance: GIMERACIL\OTERACIL\TEGAFUR
     Dates: start: 20140424

REACTIONS (2)
  - Anaphylactic shock [Recovered/Resolved]
  - Cardio-respiratory arrest [None]

NARRATIVE: CASE EVENT DATE: 20141224
